FAERS Safety Report 12712908 (Version 2)
Quarter: 2017Q1

REPORT INFORMATION
  Report Type: Report from Study
  Country: SE (occurrence: SE)
  Receive Date: 20160902
  Receipt Date: 20170104
  Transmission Date: 20170428
  Serious: Yes (Hospitalization)
  Sender: FDA-Public Use
  Company Number: SE-BRISTOL-MYERS SQUIBB COMPANY-BMS-2016-070362

PATIENT
  Age: 40 Year
  Sex: Male
  Weight: 65 kg

DRUGS (9)
  1. PREDNISOLON                        /00016201/ [Concomitant]
     Active Substance: PREDNISOLONE
     Indication: DIARRHOEA
     Dosage: 20 MG, TOTAL
     Route: 048
     Dates: start: 20160802, end: 20160822
  2. ONDANSETRON [Concomitant]
     Active Substance: ONDANSETRON
     Indication: NAUSEA
     Dosage: 16 MG, TOTAL
     Route: 048
     Dates: start: 20160810, end: 20160906
  3. NIVOLUMAB [Suspect]
     Active Substance: NIVOLUMAB
     Indication: MALIGNANT MELANOMA
     Dosage: 1 DF, TOTAL
     Route: 042
     Dates: start: 20160629
  4. KALIUM CITRAT [Concomitant]
     Indication: HYPOKALAEMIA
     Dosage: 2.25 G, UNK
     Route: 048
     Dates: start: 20160814, end: 20160916
  5. IPILIMUMAB [Suspect]
     Active Substance: IPILIMUMAB
     Indication: MALIGNANT MELANOMA
     Dosage: 1 DF, TOTAL
     Route: 042
     Dates: start: 20160629
  6. OMEPRAZOL                          /00661201/ [Concomitant]
     Active Substance: OMEPRAZOLE
     Indication: GASTRITIS
     Dosage: 20 MG, TOTAL
     Route: 048
     Dates: start: 20160802
  7. METOCLOPRAMIDE. [Concomitant]
     Active Substance: METOCLOPRAMIDE
     Indication: NAUSEA
     Dosage: 30 MG, UNK
     Route: 048
     Dates: start: 20160805, end: 20160906
  8. MOXIFLOXACIN. [Concomitant]
     Active Substance: MOXIFLOXACIN
     Indication: INFECTION
     Dosage: 400 MG, TOTAL
     Route: 048
     Dates: start: 20160727, end: 20160802
  9. LOPERAMID [Concomitant]
     Active Substance: LOPERAMIDE
     Indication: DIARRHOEA
     Dosage: 16 MG, TOTAL
     Route: 048
     Dates: start: 20160810, end: 20160906

REACTIONS (1)
  - Colitis [Recovered/Resolved]

NARRATIVE: CASE EVENT DATE: 20160821
